FAERS Safety Report 7096384-9 (Version None)
Quarter: 2010Q4

REPORT INFORMATION
  Report Type: 
  Country: None (occurrence: None)
  Receive Date: 20101111
  Receipt Date: 20101015
  Transmission Date: 20110411
  Serious: Yes (Hospitalization)
  Sender: FDA-Public Use
  Company Number: US-BRISTOL-MYERS SQUIBB COMPANY-15336746

PATIENT
  Sex: Female

DRUGS (2)
  1. IXEMPRA KIT [Suspect]
  2. XELODA [Concomitant]

REACTIONS (2)
  - HEPATIC ENZYME INCREASED [None]
  - PANCYTOPENIA [None]
